FAERS Safety Report 9936557 (Version 1)
Quarter: 2014Q1

REPORT INFORMATION
  Report Type: Spontaneous
  Country: US (occurrence: US)
  Receive Date: 20140228
  Receipt Date: 20140228
  Transmission Date: 20141002
  Serious: No
  Sender: FDA-Public Use
  Company Number: US-AMGEN-USASP2014006703

PATIENT
  Age: 42 Year
  Sex: Male

DRUGS (2)
  1. ENBREL [Suspect]
     Indication: PSORIASIS
     Dosage: UNK UNK, 2 TIMES/WK
     Route: 065
     Dates: start: 20130624, end: 201310
  2. METHOTREXATE [Concomitant]
     Dosage: UNKNOWN X 6 PILLS ONCE A WEEK
     Dates: start: 201311

REACTIONS (1)
  - Drug ineffective [Not Recovered/Not Resolved]
